FAERS Safety Report 4705638-X (Version None)
Quarter: 2005Q3

REPORT INFORMATION
  Report Type: 
  Country: None (occurrence: None)
  Receive Date: 20050701
  Receipt Date: 20050621
  Transmission Date: 20060218
  Serious: Yes (Disabling)
  Sender: FDA-Public Use
  Company Number: NO-BOEHRINGER INGELHEIM PHARMACEUTICALS, INC.-2005-SW-00277NO

PATIENT
  Sex: Male

DRUGS (2)
  1. MICARDIS [Suspect]
     Indication: HYPERTENSION
     Route: 048
     Dates: start: 20040301
  2. ALBYL-E [Concomitant]
     Indication: HYPERTENSION
     Route: 048
     Dates: start: 19960301

REACTIONS (7)
  - BODY TEMPERATURE DECREASED [None]
  - FEELING COLD [None]
  - NAUSEA [None]
  - PHARYNGEAL OEDEMA [None]
  - THROAT TIGHTNESS [None]
  - VOMITING [None]
  - WEIGHT INCREASED [None]
